FAERS Safety Report 9136099 (Version 1)
Quarter: 2013Q1

REPORT INFORMATION
  Report Type: Report from Study
  Country: US (occurrence: US)
  Receive Date: 20130304
  Receipt Date: 20130304
  Transmission Date: 20140127
  Serious: No
  Sender: FDA-Public Use
  Company Number: US-ABBOTT-12P-163-0922991-00

PATIENT
  Sex: Male
  Weight: 93.07 kg

DRUGS (4)
  1. ANDROGEL 1% [Suspect]
     Indication: BLOOD TESTOSTERONE DECREASED
     Dosage: 2.5 GRAM PACKETS ONCE DAILY
     Route: 061
     Dates: start: 201202, end: 201204
  2. ANDROGEL 1% [Suspect]
     Dosage: 5 GRAM PACKETS ONCE DAILY
     Route: 061
     Dates: start: 201204
  3. RAMIPRIL [Concomitant]
     Indication: HYPERTENSION
  4. HYDROCHLOROTHIAZIDE [Concomitant]
     Indication: HYPERTENSION

REACTIONS (1)
  - Blood testosterone decreased [Not Recovered/Not Resolved]
